FAERS Safety Report 4570101-6 (Version None)
Quarter: 2005Q1

REPORT INFORMATION
  Report Type: 
  Country: None (occurrence: None)
  Receive Date: 20050131
  Receipt Date: 20050119
  Transmission Date: 20050727
  Serious: Yes (Other)
  Sender: FDA-Public Use
  Company Number: 2004102454

PATIENT
  Sex: Male
  Weight: 102.0593 kg

DRUGS (3)
  1. DILANTIN KAPSEAL [Suspect]
     Indication: CONVULSION
  2. VIAGRA [Suspect]
     Indication: ERECTILE DYSFUNCTION
     Dosage: 25 MG, ORAL
     Route: 048
  3. VALPROATE SEMISODIUM (ALPROATE SEMISODIUM) [Concomitant]

REACTIONS (1)
  - NO ADVERSE EFFECT [None]
